FAERS Safety Report 18628201 (Version 1)
Quarter: 2020Q4

REPORT INFORMATION
  Report Type: Spontaneous
  Country: US (occurrence: US)
  Receive Date: 20201217
  Receipt Date: 20201217
  Transmission Date: 20210114
  Serious: No
  Sender: FDA-Public Use
  Company Number: None

PATIENT
  Age: 48 Year
  Sex: Female

DRUGS (1)
  1. MORPHINE [Suspect]
     Active Substance: MORPHINE
     Indication: ABDOMINAL PAIN
     Dosage: ?          OTHER FREQUENCY:X 1 DOSE;?
     Route: 042
     Dates: start: 20201216, end: 20201216

REACTIONS (1)
  - Erythema [None]

NARRATIVE: CASE EVENT DATE: 20201216
